FAERS Safety Report 10656602 (Version 2)
Quarter: 2014Q4

REPORT INFORMATION
  Report Type: Report from Study
  Country: AU (occurrence: AU)
  Receive Date: 20141216
  Receipt Date: 20141224
  Transmission Date: 20150529
  Serious: Yes (Other)
  Sender: FDA-Public Use
  Company Number: PHHY2014AU156618

PATIENT
  Age: 64 Year
  Sex: Female

DRUGS (1)
  1. STI571 [Suspect]
     Active Substance: IMATINIB MESYLATE
     Indication: MALIGNANT MELANOMA
     Dosage: 400 MG, QD
     Route: 048
     Dates: start: 201103

REACTIONS (6)
  - Depression [Unknown]
  - Malignant neoplasm progression [Unknown]
  - Gastrointestinal disorder postoperative [Unknown]
  - Metastasis [Not Recovered/Not Resolved]
  - Malignant melanoma [Unknown]
  - Musculoskeletal pain [Unknown]

NARRATIVE: CASE EVENT DATE: 201103
